FAERS Safety Report 5956350-0 (Version None)
Quarter: 2008Q4

REPORT INFORMATION
  Report Type: 
  Country: None (occurrence: None)
  Receive Date: 20081118
  Receipt Date: 20081103
  Transmission Date: 20090506
  Serious: Yes (Life-Threatening, Other)
  Sender: FDA-Public Use
  Company Number: US-BAYER-200814378BCC

PATIENT
  Age: 41 Year
  Sex: Male
  Weight: 91 kg

DRUGS (3)
  1. ALKA SELTZER PLUS SPARKLING ORIGINAL COLD [Suspect]
     Indication: NASOPHARYNGITIS
     Dosage: TOTAL DAILY DOSE: 2 DF  UNIT DOSE: 1 DF
     Dates: start: 20081101, end: 20081101
  2. ZYRTEC [Concomitant]
  3. ANTACID TAB [Concomitant]

REACTIONS (7)
  - ANAPHYLACTIC REACTION [None]
  - BLOOD PRESSURE INCREASED [None]
  - DYSPNOEA [None]
  - EXOPHTHALMOS [None]
  - POOR VENOUS ACCESS [None]
  - RESPIRATORY ARREST [None]
  - URTICARIA [None]
